FAERS Safety Report 4968412-5 (Version None)
Quarter: 2006Q2

REPORT INFORMATION
  Report Type: 
  Country: None (occurrence: None)
  Receive Date: 20060410
  Receipt Date: 20060313
  Transmission Date: 20061013
  Serious: Yes (Hospitalization)
  Sender: FDA-Public Use
  Company Number: US-MERCK-0603USA02292

PATIENT
  Age: 57 Year
  Sex: Male
  Weight: 100 kg

DRUGS (4)
  1. ACTOS [Concomitant]
     Route: 065
  2. AMARYL [Concomitant]
     Route: 065
  3. LANTUS [Concomitant]
     Route: 065
  4. VIOXX [Suspect]
     Indication: MENISCUS LESION
     Route: 048
     Dates: start: 20021201, end: 20040929

REACTIONS (1)
  - MYOCARDIAL INFARCTION [None]
